FAERS Safety Report 19495247 (Version 2)
Quarter: 2021Q3

REPORT INFORMATION
  Report Type: Other
  Country: IT (occurrence: IT)
  Receive Date: 20210706
  Receipt Date: 20210713
  Transmission Date: 20211014
  Serious: Yes (Life-Threatening)
  Sender: FDA-Public Use
  Company Number: IT-CELLTRION INC.-2021IT008966

PATIENT

DRUGS (2)
  1. BENDAMUSTINE HYDROCHLORIDE. [Suspect]
     Active Substance: BENDAMUSTINE HYDROCHLORIDE
     Indication: LYMPHOMA
     Dosage: 70 MG/M2
     Route: 042
     Dates: start: 20200721
  2. TRUXIMA [Suspect]
     Active Substance: RITUXIMAB-ABBS
     Indication: LYMPHOMA
     Dosage: 375 MG/M2
     Dates: start: 20200721, end: 20210113

REACTIONS (2)
  - Progressive multifocal leukoencephalopathy [Unknown]
  - Aphasia [Unknown]

NARRATIVE: CASE EVENT DATE: 20210210
